FAERS Safety Report 9405218 (Version 2)
Quarter: 2013Q4

REPORT INFORMATION
  Report Type: Spontaneous
  Country: US (occurrence: US)
  Receive Date: 20130717
  Receipt Date: 20131023
  Transmission Date: 20140711
  Serious: Yes (Hospitalization, Other)
  Sender: FDA-Public Use
  Company Number: US-BAYER-2013-085935

PATIENT
  Age: 41 Year
  Sex: Female
  Weight: 63.49 kg

DRUGS (2)
  1. BEYAZ [Suspect]
     Indication: CONTRACEPTION
     Dosage: UNK
     Route: 048
     Dates: start: 201304, end: 20130704
  2. BEYAZ [Suspect]
     Indication: MENORRHAGIA

REACTIONS (5)
  - Thrombotic stroke [None]
  - Hemiplegia [None]
  - Confusional state [None]
  - Aphasia [None]
  - Deep vein thrombosis [None]
